FAERS Safety Report 5832153-2 (Version None)
Quarter: 2008Q3

REPORT INFORMATION
  Report Type: 
  Country: None (occurrence: None)
  Receive Date: 20080804
  Receipt Date: 20080725
  Transmission Date: 20090109
  Serious: Yes (Hospitalization)
  Sender: FDA-Public Use
  Company Number: JP-ABBOTT-08P-087-0467226-00

PATIENT
  Sex: Male

DRUGS (4)
  1. NORVIR [Suspect]
     Indication: HIV INFECTION
     Route: 048
     Dates: start: 20050609
  2. LAMIVUDINE [Concomitant]
     Indication: HIV INFECTION
     Route: 048
     Dates: start: 20050609
  3. ATAZANAVIR SULFATE [Concomitant]
     Indication: HIV INFECTION
     Dosage: 300 MG DAILY
     Route: 048
     Dates: start: 20050609
  4. TENOFOVIR [Concomitant]
     Indication: HIV INFECTION
     Dosage: 300 MG DAILY
     Route: 048
     Dates: start: 20050609

REACTIONS (1)
  - APPENDICITIS [None]
